FAERS Safety Report 16819207 (Version 1)
Quarter: 2019Q3

REPORT INFORMATION
  Report Type: Spontaneous
  Country: KW (occurrence: KW)
  Receive Date: 20190917
  Receipt Date: 20190917
  Transmission Date: 20191005
  Serious: Yes (Death, Other)
  Sender: FDA-Public Use
  Company Number: KW-BAUSCH-BL-2019-025602

PATIENT
  Age: 34 Year
  Sex: Female

DRUGS (8)
  1. ALL TRANS RETINOIC ACID [Suspect]
     Active Substance: TRETINOIN
     Dosage: ATO PLUS ATRA
     Route: 065
  2. DEXAMETHASONE. [Suspect]
     Active Substance: DEXAMETHASONE
     Indication: DIFFERENTIATION SYNDROME
     Route: 065
  3. ARSENIC TRIOXIDE. [Suspect]
     Active Substance: ARSENIC TRIOXIDE
     Indication: DISEASE RECURRENCE
     Route: 065
  4. ALL TRANS RETINOIC ACID [Suspect]
     Active Substance: TRETINOIN
     Indication: ACUTE PROMYELOCYTIC LEUKAEMIA
     Dosage: INDUCTION THERAPY
     Route: 065
  5. METHOTREXATE. [Suspect]
     Active Substance: METHOTREXATE
     Indication: DIFFERENTIATION SYNDROME
     Route: 065
  6. MERCAPTOPURINE. [Suspect]
     Active Substance: MERCAPTOPURINE
     Indication: DIFFERENTIATION SYNDROME
     Route: 065
  7. IDARUBICIN [Suspect]
     Active Substance: IDARUBICIN
     Indication: ACUTE PROMYELOCYTIC LEUKAEMIA
     Dosage: INDUCTION THERAPY
     Route: 065
  8. ALL TRANS RETINOIC ACID [Suspect]
     Active Substance: TRETINOIN
     Indication: DIFFERENTIATION SYNDROME
     Dosage: MAINTENANCE THERAPY
     Route: 065

REACTIONS (4)
  - Maternal exposure during pregnancy [Unknown]
  - Differentiation syndrome [Unknown]
  - Sepsis [Fatal]
  - Abortion spontaneous [Unknown]
